FAERS Safety Report 25874832 (Version 5)
Quarter: 2025Q4

REPORT INFORMATION
  Report Type: Report from Study
  Country: CA (occurrence: CA)
  Receive Date: 20251002
  Receipt Date: 20251104
  Transmission Date: 20260117
  Serious: Yes (Hospitalization, Other)
  Sender: IPSEN BIOPHARMACEUTICALS, INC.
  Company Number: CA-IPSEN Group, Research and Development-2023-02821

PATIENT
  Age: 58 Year
  Sex: Male
  Weight: 77 kg

DRUGS (42)
  1. LANREOTIDE ACETATE [Suspect]
     Active Substance: LANREOTIDE ACETATE
     Indication: Gastroenteropancreatic neuroendocrine tumour disease
     Dosage: DEEP SUBCUTANEOUS ROUTE
     Route: 058
     Dates: start: 20200227
  2. LANREOTIDE ACETATE [Suspect]
     Active Substance: LANREOTIDE ACETATE
     Dosage: EXPIRY DATE: 31-JAN-2028?BATCH NO: 020699 (018912), 29-FEB-2028
     Route: 058
     Dates: start: 20250623
  3. XERMELO [Suspect]
     Active Substance: TELOTRISTAT ETHYL
     Indication: Product used for unknown indication
  4. IVIGLOB EX [Suspect]
     Active Substance: HUMAN IMMUNOGLOBULIN G
     Indication: Product used for unknown indication
  5. SUTANT [Concomitant]
  6. SANDOSTATIN [Concomitant]
     Active Substance: OCTREOTIDE ACETATE
     Dosage: 120 MCG PRN
  7. RITUXAN [Concomitant]
     Active Substance: RITUXIMAB
  8. MEDROL [Concomitant]
     Active Substance: METHYLPREDNISOLONE
  9. VITAMIN B12 [Concomitant]
     Active Substance: CYANOCOBALAMIN
     Indication: Product used for unknown indication
     Dosage: 1ML VITB12 S/C MONTHLY
     Route: 058
  10. COTAZYM ECS-8 [Concomitant]
  11. CALCIUM [Concomitant]
     Active Substance: CALCIUM
  12. VITAMIN D NOS [Concomitant]
     Active Substance: CHOLECALCIFEROL\ERGOCALCIFEROL
  13. MAGNESIUM [Concomitant]
     Active Substance: MAGNESIUM
  14. METOCLOPRAMIDE [Concomitant]
     Active Substance: METOCLOPRAMIDE
     Dosage: 5 MG 2 CO TID PRN,
  15. LOPERAMIDE [Concomitant]
     Active Substance: LOPERAMIDE
     Indication: Diarrhoea
     Dosage: 1 TAB SUBSEQUENT
  16. LOMOTIL [Concomitant]
     Active Substance: ATROPINE SULFATE\DIPHENOXYLATE HYDROCHLORIDE
     Dosage: 0.025 MG-2.5 MG 2 CO PRN (1-2 DOSE/DAY MAX
  17. DILAUDID [Concomitant]
     Active Substance: HYDROMORPHONE HYDROCHLORIDE
  18. DILAUDID [Concomitant]
     Active Substance: HYDROMORPHONE HYDROCHLORIDE
  19. ATIVAN [Concomitant]
     Active Substance: LORAZEPAM
  20. CANNABIS SATIVA SEED OIL\HERBALS [Concomitant]
     Active Substance: CANNABIS SATIVA SEED OIL\HERBALS
     Indication: Nausea
  21. CANNABIS SATIVA SEED OIL\HERBALS [Concomitant]
     Active Substance: CANNABIS SATIVA SEED OIL\HERBALS
     Indication: Pain
  22. SYNTHROID [Concomitant]
     Active Substance: LEVOTHYROXINE SODIUM
     Dosage: 10 MG, 1 CO DIE
  23. HYDROMORPHONE [Concomitant]
     Active Substance: HYDROMORPHONE
     Dosage: 3 MG PO, LONG ACTING BID
     Route: 048
  24. ZIMBALTA [Concomitant]
     Dosage: 60MG PO DAILY
     Route: 048
  25. METFORMIN [Concomitant]
     Active Substance: METFORMIN HYDROCHLORIDE
  26. FOSAMAX [Concomitant]
     Active Substance: ALENDRONATE SODIUM
  27. LYRICA [Concomitant]
     Active Substance: PREGABALIN
     Dosage: 25MG PO BID
     Route: 048
  28. INSULIN NOS [Concomitant]
     Active Substance: INSULIN NOS
     Dosage: HUMALOG INSULIN. 10-10-4 UNITS WITH MEALS
  29. PREGABALIN [Concomitant]
     Active Substance: PREGABALIN
     Dosage: 25 MG 1 CO AM, 2 CO PM, ( WAS 25MG BEFORE)
  30. FLUCONAZOLE [Concomitant]
     Active Substance: FLUCONAZOLE
     Dosage: 2 CO DAY 1 AND THEN 1 CO DIE
     Dates: start: 20250325
  31. FOLIC ACID [Concomitant]
     Active Substance: FOLIC ACID
  32. DEXILANT [Concomitant]
     Active Substance: DEXLANSOPRAZOLE
     Indication: Product used for unknown indication
  33. RITUXIMAB [Concomitant]
     Active Substance: RITUXIMAB
     Dosage: 10 MG 2X EVERY 6 MONTH
  34. CREON [Concomitant]
     Active Substance: PANCRELIPASE AMYLASE\PANCRELIPASE LIPASE\PANCRELIPASE PROTEASE
     Dosage: 3X DAY WITH MEALS
  35. CREON [Concomitant]
     Active Substance: PANCRELIPASE AMYLASE\PANCRELIPASE LIPASE\PANCRELIPASE PROTEASE
     Dosage: CREON 10 UP TO 3X DAY WITH SNACKS
  36. ALENDRONATE [Concomitant]
     Active Substance: ALENDRONATE SODIUM
     Dosage: 1 CO WEEKLY
  37. CYANOCOBALAMIN [Concomitant]
     Active Substance: CYANOCOBALAMIN
     Indication: Product used for unknown indication
  38. Tuojeo Insulin [Concomitant]
     Dosage: TUOJEO INSULIN, 8 UNITS AM
  39. ALENDRONATE SODIUM [Concomitant]
     Active Substance: ALENDRONATE SODIUM
     Indication: Product used for unknown indication
  40. ALENDRONIC ACID [Concomitant]
     Active Substance: ALENDRONIC ACID
  41. DEXLANSOPRAZOLE [Concomitant]
     Active Substance: DEXLANSOPRAZOLE
  42. IMMUNOGLOBULIN [Concomitant]

REACTIONS (113)
  - Spinal fracture [Not Recovered/Not Resolved]
  - Osteoporotic fracture [Not Recovered/Not Resolved]
  - Hemiparesis [Not Recovered/Not Resolved]
  - Fatigue [Recovered/Resolved]
  - Malaise [Recovered/Resolved]
  - Abdominal pain upper [Recovered/Resolved]
  - Pyrexia [Recovered/Resolved]
  - Vomiting [Recovered/Resolved]
  - Diarrhoea [Recovered/Resolved]
  - Abdominal infection [Recovered/Resolved]
  - Autoimmune disorder [Not Recovered/Not Resolved]
  - Osteoporotic fracture [Unknown]
  - Spinal fracture [Unknown]
  - Photopsia [Recovered/Resolved]
  - Corneal deposits [Not Recovered/Not Resolved]
  - Nausea [Recovered/Resolved]
  - Flushing [Recovering/Resolving]
  - Dizziness [Recovering/Resolving]
  - Oropharyngeal pain [Not Recovered/Not Resolved]
  - Pain [Not Recovered/Not Resolved]
  - Fatigue [Not Recovered/Not Resolved]
  - Cough [Not Recovered/Not Resolved]
  - Rash [Not Recovered/Not Resolved]
  - Insomnia [Not Recovered/Not Resolved]
  - Headache [Recovered/Resolved]
  - Decreased appetite [Recovered/Resolved]
  - Contusion [Not Recovered/Not Resolved]
  - Abdominal pain upper [Recovering/Resolving]
  - Pyrexia [Recovered/Resolved]
  - SARS-CoV-2 test positive [Recovered/Resolved]
  - Gastrointestinal microorganism overgrowth [Recovered/Resolved]
  - Pancreatic polypeptide level decreased [Not Recovered/Not Resolved]
  - Blood glucose increased [Not Recovered/Not Resolved]
  - Skin mass [Not Recovered/Not Resolved]
  - Pain in extremity [Not Recovered/Not Resolved]
  - Carpal tunnel syndrome [Not Recovered/Not Resolved]
  - Neuralgia [Recovering/Resolving]
  - Pain [Recovered/Resolved]
  - Abdominal distension [Recovered/Resolved]
  - Flatulence [Recovering/Resolving]
  - Blood iron decreased [Recovered/Resolved]
  - Flushing [Recovered/Resolved]
  - Dizziness [Recovered/Resolved]
  - Nausea [Recovered/Resolved]
  - Weight increased [Not Recovered/Not Resolved]
  - Blood glucose fluctuation [Recovered/Resolved]
  - Blood magnesium decreased [Not Recovered/Not Resolved]
  - Pain [Not Recovered/Not Resolved]
  - Flushing [Recovered/Resolved]
  - Headache [Recovered/Resolved]
  - Pain [Recovered/Resolved]
  - Blood magnesium decreased [Recovered/Resolved]
  - Fatigue [Not Recovered/Not Resolved]
  - Symptom recurrence [Not Recovered/Not Resolved]
  - Dry skin [Not Recovered/Not Resolved]
  - Flushing [Not Recovered/Not Resolved]
  - Diarrhoea [Not Recovered/Not Resolved]
  - Blood glucose increased [Recovered/Resolved]
  - Candida infection [Recovering/Resolving]
  - Nausea [Recovered/Resolved]
  - Skin infection [Recovering/Resolving]
  - Dry skin [Recovering/Resolving]
  - Limb injury [Recovered/Resolved]
  - Abdominal pain upper [Recovered/Resolved]
  - Nasopharyngitis [Recovering/Resolving]
  - Flushing [Recovered/Resolved]
  - Blood pressure increased [Recovered/Resolved]
  - Exostosis [Not Recovered/Not Resolved]
  - Muscle atrophy [Not Recovered/Not Resolved]
  - Muscular weakness [Not Recovered/Not Resolved]
  - Limb injury [Recovered/Resolved]
  - Contusion [Not Recovered/Not Resolved]
  - Blood pressure increased [Not Recovered/Not Resolved]
  - Dyspnoea exertional [Recovered/Resolved]
  - Arthralgia [Recovering/Resolving]
  - Oral candidiasis [Recovered/Resolved]
  - Gingival pain [Recovering/Resolving]
  - Diarrhoea [Recovered/Resolved]
  - Asthenia [Recovering/Resolving]
  - Constipation [Recovered/Resolved]
  - Weight decreased [Unknown]
  - Intestinal polyp [Not Recovered/Not Resolved]
  - Off label use [Unknown]
  - Abdominal distension [Unknown]
  - Abdominal pain upper [Unknown]
  - Asthenia [Unknown]
  - Carpal tunnel syndrome [Unknown]
  - Flatulence [Unknown]
  - Gastrointestinal microorganism overgrowth [Recovered/Resolved]
  - Intestinal polyp [Unknown]
  - SARS-CoV-2 test positive [Recovered/Resolved]
  - Pyrexia [Recovered/Resolved]
  - Skin mass [Unknown]
  - Candida infection [Unknown]
  - Oropharyngeal pain [Not Recovered/Not Resolved]
  - Photopsia [Not Recovered/Not Resolved]
  - Contusion [Unknown]
  - Blood glucose increased [Unknown]
  - Decreased appetite [Not Recovered/Not Resolved]
  - Dizziness [Not Recovered/Not Resolved]
  - Nausea [Unknown]
  - Blood iron decreased [Unknown]
  - Headache [Unknown]
  - Blood glucose fluctuation [Not Recovered/Not Resolved]
  - Corneal deposits [Not Recovered/Not Resolved]
  - Constipation [Not Recovered/Not Resolved]
  - Cough [Not Recovered/Not Resolved]
  - Fatigue [Not Recovered/Not Resolved]
  - Pain [Not Recovered/Not Resolved]
  - Pain in extremity [Not Recovered/Not Resolved]
  - Weight decreased [Not Recovered/Not Resolved]
  - Blood magnesium abnormal [Unknown]
  - Pain [Recovering/Resolving]

NARRATIVE: CASE EVENT DATE: 20220101
